FAERS Safety Report 11874544 (Version 5)
Quarter: 2018Q3

REPORT INFORMATION
  Report Type: Report from Study
  Country: FR (occurrence: FR)
  Receive Date: 20151229
  Receipt Date: 20180801
  Transmission Date: 20181010
  Serious: Yes (Hospitalization, Other)
  Sender: FDA-Public Use
  Company Number: PHHY2014FR085204

PATIENT
  Age: 52 Year
  Sex: Female
  Weight: 65 kg

DRUGS (19)
  1. MYFORTIC [Suspect]
     Active Substance: MYCOPHENOLATE SODIUM
     Indication: LIVER TRANSPLANT
     Dosage: 1440 MG, QD
     Route: 065
     Dates: start: 20130612, end: 20140613
  2. ADVAGRAF [Suspect]
     Active Substance: TACROLIMUS
     Indication: IMMUNOSUPPRESSANT DRUG THERAPY
     Dosage: 4 MG, QD
     Route: 065
     Dates: start: 20131019, end: 20131220
  3. PROGRAF [Concomitant]
     Active Substance: TACROLIMUS\TACROLIMUS ANHYDROUS
     Indication: IMMUNOSUPPRESSANT DRUG THERAPY
     Dosage: 4 MG, QD
     Route: 065
     Dates: start: 20130916, end: 20131018
  4. AMLOR [Concomitant]
     Active Substance: AMLODIPINE BESYLATE
     Indication: HYPERTENSION
     Dosage: 5 MG, QD
     Route: 065
     Dates: start: 20151210
  5. NOROXINE [Concomitant]
     Active Substance: NORFLOXACIN
     Indication: URINARY TRACT DISORDER
  6. TAVANIC [Concomitant]
     Active Substance: LEVOFLOXACIN
     Indication: URINARY TRACT DISORDER
  7. NEORAL [Suspect]
     Active Substance: CYCLOSPORINE
     Dosage: 200 MG, QD
     Route: 065
     Dates: start: 20150909, end: 20160616
  8. TAVANIC [Concomitant]
     Active Substance: LEVOFLOXACIN
     Indication: VAGINAL DISORDER
     Dosage: UNK
     Route: 065
     Dates: start: 201409, end: 201409
  9. CERTICAN [Suspect]
     Active Substance: EVEROLIMUS
     Indication: LIVER TRANSPLANT
     Dosage: UNK
     Route: 048
  10. NEORAL [Suspect]
     Active Substance: CYCLOSPORINE
     Indication: IMMUNOSUPPRESSANT DRUG THERAPY
     Dosage: 200 MG, QD
     Route: 065
     Dates: start: 20150526, end: 201506
  11. ADVAGRAF [Suspect]
     Active Substance: TACROLIMUS
     Dosage: 5 MG, QD
     Route: 065
     Dates: start: 20131221, end: 20140307
  12. NOROXINE [Concomitant]
     Active Substance: NORFLOXACIN
     Indication: VAGINAL DISORDER
     Dosage: UNK
     Route: 065
     Dates: start: 201409, end: 201409
  13. MYFORTIC [Suspect]
     Active Substance: MYCOPHENOLATE SODIUM
     Indication: IMMUNOSUPPRESSANT DRUG THERAPY
     Dosage: 1080 MG, QD
     Route: 065
     Dates: start: 20140614, end: 20150507
  14. NEORAL [Suspect]
     Active Substance: CYCLOSPORINE
     Dosage: 250 MG, QD
     Route: 065
     Dates: start: 201506, end: 20150630
  15. NEORAL [Suspect]
     Active Substance: CYCLOSPORINE
     Dosage: 225 MG, QD
     Route: 065
     Dates: start: 20150701, end: 20150908
  16. ADVAGRAF [Suspect]
     Active Substance: TACROLIMUS
     Dosage: 6 MG, QD
     Route: 065
     Dates: start: 20140308, end: 20140613
  17. ADVAGRAF [Suspect]
     Active Substance: TACROLIMUS
     Dosage: 5 MG, QD
     Route: 065
     Dates: start: 20140614, end: 20150521
  18. NEORAL [Suspect]
     Active Substance: CYCLOSPORINE
     Dosage: 175 MG, UNK
     Route: 065
     Dates: start: 20160617
  19. AMOXICILLINE//AMOXICILLIN SODIUM [Concomitant]
     Indication: ANGINA PECTORIS
     Dosage: UNK
     Route: 065
     Dates: start: 201403, end: 201403

REACTIONS (7)
  - Abscess oral [Recovered/Resolved]
  - Mouth ulceration [Unknown]
  - Mouth ulceration [Recovered/Resolved]
  - Aphthous ulcer [Unknown]
  - Mouth ulceration [Recovered/Resolved]
  - Gingival ulceration [Recovered/Resolved]
  - Oral disorder [Recovered/Resolved]

NARRATIVE: CASE EVENT DATE: 2013
